FAERS Safety Report 7736347-0 (Version None)
Quarter: 2011Q3

REPORT INFORMATION
  Report Type: 
  Country: None (occurrence: None)
  Receive Date: 20110902
  Receipt Date: 20110830
  Transmission Date: 20111222
  Serious: Yes (Other)
  Sender: FDA-Public Use
  Company Number: 1000022350

PATIENT
  Age: 78 Year
  Sex: Female

DRUGS (7)
  1. LEXAPRO [Suspect]
     Indication: DEPRESSION
     Dosage: 15 MG,ORAL
     Route: 048
     Dates: start: 20110601, end: 20110722
  2. NAMENDA [Concomitant]
  3. LEVOTHYROXINE (LEVOTHYROXINE SODIUM) (LEVOTHYROXINE SODIUM) [Concomitant]
  4. LEXAPRO [Suspect]
     Indication: DEPRESSION
     Dosage: 10 MG,ORAL
     Route: 048
     Dates: start: 20110101, end: 20110601
  5. LEXAPRO [Suspect]
     Indication: DEPRESSION
     Dosage: 10 MG,ORAL
     Route: 048
     Dates: start: 20110723, end: 20110726
  6. LEXAPRO [Suspect]
     Indication: DEPRESSION
     Dosage: 5 MG,ORAL
     Route: 048
     Dates: start: 20110727, end: 20110101
  7. EXELON (RIVASTIGMINE) (TRANSDERMAL) (RIVASTIGMINE) [Concomitant]

REACTIONS (1)
  - CUTANEOUS LUPUS ERYTHEMATOSUS [None]
